FAERS Safety Report 16931886 (Version 2)
Quarter: 2025Q4

REPORT INFORMATION
  Report Type: Report from Study
  Country: US (occurrence: US)
  Receive Date: 20191017
  Receipt Date: 20251119
  Transmission Date: 20260118
  Serious: Yes (Life-Threatening)
  Sender: TAKEDA
  Company Number: US-SHIRE-US201932895

PATIENT
  Age: 56 Year
  Sex: Female

DRUGS (8)
  1. PARATHYROID HORMONE [Suspect]
     Active Substance: PARATHYROID HORMONE
     Indication: Hypoparathyroidism
     Dosage: 25 MICROGRAM, BID
     Dates: start: 20180522
  2. PARATHYROID HORMONE [Suspect]
     Active Substance: PARATHYROID HORMONE
     Indication: Post procedural hypoparathyroidism
     Dosage: 50 MICROGRAM
  3. PARATHYROID HORMONE [Suspect]
     Active Substance: PARATHYROID HORMONE
     Dosage: 25 MICROGRAM, BID
     Dates: start: 201905
  4. PARATHYROID HORMONE [Suspect]
     Active Substance: PARATHYROID HORMONE
     Dosage: 50 MICROGRAM
  5. CALCIUM [Concomitant]
     Active Substance: CALCIUM
     Indication: Hypoparathyroidism
     Dosage: UNK
  6. CALCITRIOL [Concomitant]
     Active Substance: CALCITRIOL
     Indication: Hypoparathyroidism
     Dosage: UNK
  7. VITAMIN D [Concomitant]
     Active Substance: VITAMIN D NOS
     Indication: Hypoparathyroidism
     Dosage: UNK
  8. YORVIPATH [Concomitant]
     Active Substance: PALOPEGTERIPARATIDE
     Dosage: UNK

REACTIONS (2)
  - Condition aggravated [Unknown]
  - Recalled product [Unknown]
